FAERS Safety Report 14765379 (Version 1)
Quarter: 2018Q2

REPORT INFORMATION
  Report Type: Spontaneous
  Country: CA (occurrence: CA)
  Receive Date: 20180416
  Receipt Date: 20180416
  Transmission Date: 20180711
  Serious: Yes (Other)
  Sender: FDA-Public Use
  Company Number: CA-TEVA-2018-CA-879957

PATIENT
  Age: 57 Year
  Sex: Female

DRUGS (4)
  1. REMERON RD [Concomitant]
     Active Substance: MIRTAZAPINE
  2. METOPROLOL. [Suspect]
     Active Substance: METOPROLOL
     Route: 065
  3. HEPARIN (PORCINE) [Concomitant]
  4. METFORMIN [Concomitant]
     Active Substance: METFORMIN HYDROCHLORIDE

REACTIONS (2)
  - Pruritus [Unknown]
  - Pharyngeal oedema [Unknown]
